FAERS Safety Report 15042549 (Version 1)
Quarter: 2018Q2

REPORT INFORMATION
  Report Type: Report from Study
  Country: DO (occurrence: DO)
  Receive Date: 20180621
  Receipt Date: 20180621
  Transmission Date: 20180711
  Serious: Yes (Other)
  Sender: FDA-Public Use
  Company Number: PHHY2017DO108343

PATIENT
  Age: 26 Year
  Sex: Female

DRUGS (2)
  1. TETANUS TOXOID ADSORBED (VACCINE) [Suspect]
     Active Substance: CLOSTRIDIUM TETANI TOXOID ANTIGEN (FORMALDEHYDE INACTIVATED)
     Indication: PRODUCT USED FOR UNKNOWN INDICATION
     Route: 065
  2. GILENYA [Suspect]
     Active Substance: FINGOLIMOD HYDROCHLORIDE
     Indication: PRODUCT USED FOR UNKNOWN INDICATION
     Dosage: UNK
     Route: 065

REACTIONS (18)
  - Pyrexia [Recovered/Resolved]
  - Haematoma [Unknown]
  - Pain [Unknown]
  - Visual impairment [Unknown]
  - Contusion [Unknown]
  - Upper respiratory tract congestion [Unknown]
  - Headache [Recovered/Resolved]
  - Pyrexia [Unknown]
  - Nasal congestion [Unknown]
  - Malaise [Unknown]
  - Influenza [Unknown]
  - Anxiety [Unknown]
  - Intentional self-injury [Unknown]
  - Sleep disorder [Unknown]
  - Diarrhoea [Unknown]
  - Heart rate increased [Recovered/Resolved]
  - Heart rate decreased [Recovered/Resolved]
  - Fatigue [Recovering/Resolving]
